FAERS Safety Report 15727670 (Version 1)
Quarter: 2018Q4

REPORT INFORMATION
  Report Type: Spontaneous
  Country: US (occurrence: US)
  Receive Date: 20181217
  Receipt Date: 20181217
  Transmission Date: 20190205
  Serious: No
  Sender: FDA-Public Use
  Company Number: US-NOVEN PHARMACEUTICALS, INC.-US2018000353

PATIENT

DRUGS (5)
  1. MINIVELLE [Suspect]
     Active Substance: ESTRADIOL
     Dosage: 0.075 MG, 2/WK
     Route: 062
  2. MINIVELLE [Suspect]
     Active Substance: ESTRADIOL
     Indication: HORMONE REPLACEMENT THERAPY
     Dosage: 0.1 MG, 2/WK
     Route: 062
  3. ALAVERT ALLERGY SINUS D-12 [Concomitant]
     Active Substance: LORATADINE\PSEUDOEPHEDRINE SULFATE
     Indication: HYPERSENSITIVITY
     Dosage: UNK, QD
  4. CITRACAL [Concomitant]
     Active Substance: CALCIUM CITRATE
  5. VITAMIN B12 [Concomitant]
     Active Substance: CYANOCOBALAMIN

REACTIONS (5)
  - Drug ineffective [Unknown]
  - Hot flush [Unknown]
  - Blood oestrogen decreased [Unknown]
  - Vulvovaginal dryness [Unknown]
  - Therapy cessation [Not Recovered/Not Resolved]
